FAERS Safety Report 8129628-2 (Version None)
Quarter: 2012Q1

REPORT INFORMATION
  Report Type: 
  Country: None (occurrence: None)
  Receive Date: 20120210
  Receipt Date: 20120206
  Transmission Date: 20120608
  Serious: Yes (Life-Threatening)
  Sender: FDA-Public Use
  Company Number: DK-GLAXOSMITHKLINE-B0780701A

PATIENT
  Sex: Female
  Weight: 72 kg

DRUGS (2)
  1. REQUIP CR [Suspect]
     Indication: PARKINSONISM
     Dosage: 8MG PER DAY
     Route: 048
     Dates: start: 20111201, end: 20120128
  2. FUROSEMIDE [Concomitant]
     Indication: OEDEMA PERIPHERAL
     Route: 065

REACTIONS (1)
  - STATUS ASTHMATICUS [None]
